FAERS Safety Report 4724350-4 (Version None)
Quarter: 2005Q3

REPORT INFORMATION
  Report Type: 
  Country: None (occurrence: None)
  Receive Date: 20050726
  Receipt Date: 20050215
  Transmission Date: 20060218
  Serious: Yes (Hospitalization, Other)
  Sender: FDA-Public Use
  Company Number: PHHO2005IL02862

PATIENT
  Age: 61 Year
  Sex: Male
  Weight: 56 kg

DRUGS (16)
  1. NEORAL [Suspect]
     Indication: HEART TRANSPLANT
     Dosage: 300 MG / DAY
     Route: 048
     Dates: start: 20050208, end: 20050210
  2. NEORAL [Suspect]
     Dosage: 100 MG, BID
     Route: 048
  3. NEORAL [Suspect]
     Dosage: 175 MG/DAY
     Route: 048
  4. NEORAL [Suspect]
     Dosage: 125 MG, BID
     Route: 048
  5. ANTITHYMOCYTE IMMUNOGLOBULIN (RABBIT) [Concomitant]
     Indication: HEART TRANSPLANT
     Dosage: 150 MG / DAY
     Route: 048
     Dates: start: 20050207, end: 20050214
  6. PREDNISONE [Concomitant]
     Indication: HEART TRANSPLANT
     Dosage: 30 MG / DAY
     Route: 048
     Dates: start: 20050208
  7. CERTICAN VS MYCOPHENOLATE MOFETIL [Suspect]
     Indication: HEART TRANSPLANT
     Dosage: 0.75 MG, BID
     Route: 048
     Dates: start: 20050208, end: 20050304
  8. CERTICAN VS MYCOPHENOLATE MOFETIL [Suspect]
     Dosage: 0.5 MG/DAY
     Dates: start: 20050316, end: 20050318
  9. CERTICAN VS MYCOPHENOLATE MOFETIL [Suspect]
     Dosage: UNK, NO TREATMENT
     Dates: start: 20050305, end: 20050315
  10. CERTICAN VS MYCOPHENOLATE MOFETIL [Suspect]
     Dosage: NO TREATMENT
     Dates: start: 20050319, end: 20050328
  11. CERTICAN VS MYCOPHENOLATE MOFETIL [Suspect]
     Dosage: 0.25 MG/DAY
     Dates: start: 20050329
  12. CERTICAN VS MYCOPHENOLATE MOFETIL [Suspect]
     Dosage: 0.5 MG/DAY
     Route: 048
  13. CERTICAN VS MYCOPHENOLATE MOFETIL [Suspect]
     Dosage: 0.5 MG, BID
     Route: 048
  14. VALGANCICLOVIR [Suspect]
  15. VALGANCICLOVIR [Suspect]
     Dosage: 450 MG, QD
  16. RESPRIM [Suspect]

REACTIONS (5)
  - BONE MARROW DEPRESSION [None]
  - LEUKOPENIA [None]
  - PANCYTOPENIA [None]
  - RENAL IMPAIRMENT [None]
  - THROMBOCYTOPENIA [None]
